FAERS Safety Report 6685939-9 (Version None)
Quarter: 2010Q2

REPORT INFORMATION
  Report Type: 
  Country: None (occurrence: None)
  Receive Date: 20100419
  Receipt Date: 20100405
  Transmission Date: 20101027
  Serious: Yes (Other)
  Sender: FDA-Public Use
  Company Number: PHHY2010JP21170

PATIENT
  Age: 60 Year
  Sex: Female

DRUGS (4)
  1. ZOLEDRONIC ACID [Suspect]
     Indication: BREAST CANCER METASTATIC
     Dosage: 4 MG 14 TIMES
     Route: 042
     Dates: start: 20080201
  2. ZOLEDRONIC ACID [Suspect]
     Dosage: 4 MG 14 TIMES
     Route: 042
     Dates: start: 20090301
  3. DEXAMETHASONE [Suspect]
     Dosage: TEN TIMES
     Dates: start: 20080201
  4. DEXAMETHASONE [Suspect]
     Dosage: TEN TIMES
     Dates: start: 20090301

REACTIONS (6)
  - BONE DENSITY INCREASED [None]
  - BONE DISORDER [None]
  - IMPAIRED HEALING [None]
  - OSTEONECROSIS [None]
  - PURULENT DISCHARGE [None]
  - TOOTH EXTRACTION [None]
